FAERS Safety Report 11741972 (Version 1)
Quarter: 2015Q4

REPORT INFORMATION
  Report Type: Spontaneous
  Country: US (occurrence: US)
  Receive Date: 20151116
  Receipt Date: 20151116
  Transmission Date: 20160304
  Serious: Yes (Hospitalization, Other)
  Sender: FDA-Public Use
  Company Number: US-BEH-2015055709

PATIENT
  Sex: Female
  Weight: 113 kg

DRUGS (10)
  1. HIZENTRA [Suspect]
     Active Substance: HUMAN IMMUNOGLOBULIN G
     Indication: IMMUNODEFICIENCY COMMON VARIABLE
     Route: 058
  2. OXYCODONE [Concomitant]
     Active Substance: OXYCODONE
  3. EAR DROPS [Concomitant]
  4. PROCARDIA XL [Concomitant]
     Active Substance: NIFEDIPINE
  5. WELLBUTRIN XL [Concomitant]
     Active Substance: BUPROPION HYDROCHLORIDE
  6. PROZAC [Concomitant]
     Active Substance: FLUOXETINE HYDROCHLORIDE
  7. ENJUVIA [Concomitant]
     Active Substance: ESTROGENS, CONJUGATED SYNTHETIC B
  8. EPIPEN [Concomitant]
     Active Substance: EPINEPHRINE
  9. DIOVAN [Concomitant]
     Active Substance: VALSARTAN
  10. DIPHENHYDRAMINE. [Concomitant]
     Active Substance: DIPHENHYDRAMINE

REACTIONS (1)
  - Spinal operation [Unknown]
